FAERS Safety Report 5180931-8 (Version None)
Quarter: 2006Q4

REPORT INFORMATION
  Report Type: 
  Country: None (occurrence: None)
  Receive Date: 20061218
  Receipt Date: 20061218
  Transmission Date: 20070319
  Serious: Yes (Death)
  Sender: FDA-Public Use
  Company Number: None

PATIENT
  Age: 40 Year
  Sex: Male
  Weight: 74.8435 kg

DRUGS (3)
  1. PAROXETINE HYDROCHLORIDE [Suspect]
     Indication: ANXIETY
     Dosage: 20MGS  NIGHTLY  PO
     Route: 048
     Dates: start: 20051112, end: 20051113
  2. PAROXETINE HYDROCHLORIDE [Suspect]
     Indication: INSOMNIA
     Dosage: 20MGS  NIGHTLY  PO
     Route: 048
     Dates: start: 20051112, end: 20051113
  3. PAROXETINE HYDROCHLORIDE [Suspect]
     Indication: STRESS
     Dosage: 20MGS  NIGHTLY  PO
     Route: 048
     Dates: start: 20051112, end: 20051113

REACTIONS (1)
  - COMPLETED SUICIDE [None]
